FAERS Safety Report 5829790-8 (Version None)
Quarter: 2008Q3

REPORT INFORMATION
  Report Type: 
  Country: None (occurrence: None)
  Receive Date: 20080801
  Receipt Date: 20080725
  Transmission Date: 20090109
  Serious: Yes (Other)
  Sender: FDA-Public Use
  Company Number: US-JNJFOC-20080706671

PATIENT
  Sex: Female

DRUGS (1)
  1. ULTRAM ER [Suspect]
     Indication: PAIN
     Route: 048

REACTIONS (1)
  - RENAL DISORDER [None]
